FAERS Safety Report 7478924-0 (Version None)
Quarter: 2011Q2

REPORT INFORMATION
  Report Type: 
  Country: None (occurrence: None)
  Receive Date: 20110505
  Receipt Date: 20110426
  Transmission Date: 20111010
  Serious: Yes (Other)
  Sender: FDA-Public Use
  Company Number: 11257

PATIENT
  Age: 79 Year
  Sex: Male
  Weight: 74.8435 kg

DRUGS (5)
  1. CLARITIN [Concomitant]
  2. ALEVE [Suspect]
     Indication: BACK PAIN
     Dosage: 440 MG, ONCE, ORAL
     Route: 048
     Dates: start: 20110317
  3. LISINOPRIL [Concomitant]
  4. PROPRANOLOL [Concomitant]
  5. ASPIRIN [Concomitant]

REACTIONS (13)
  - DIZZINESS [None]
  - HEAD INJURY [None]
  - PULSE ABSENT [None]
  - BLOOD ELECTROLYTES ABNORMAL [None]
  - FEELING HOT [None]
  - ERYTHEMA [None]
  - LOSS OF CONSCIOUSNESS [None]
  - SWELLING FACE [None]
  - HAEMORRHAGE [None]
  - FALL [None]
  - BLOOD SODIUM DECREASED [None]
  - LACERATION [None]
  - BLOOD POTASSIUM DECREASED [None]
